FAERS Safety Report 23446973 (Version 1)
Quarter: 2024Q1

REPORT INFORMATION
  Report Type: Spontaneous
  Country: US (occurrence: None)
  Receive Date: 20240125
  Receipt Date: 20240125
  Transmission Date: 20240410
  Serious: Yes (Life-Threatening, Hospitalization)
  Sender: FDA-Public Use
  Company Number: None

PATIENT
  Age: 19 Year
  Sex: Male
  Weight: 86 kg

DRUGS (1)
  1. CALASPARGASE PEGOL [Suspect]
     Active Substance: CALASPARGASE PEGOL
     Dosage: 5000 DF FOSAGE FORM ONE TIME INTRAVENOUS?
     Route: 042
     Dates: start: 20240124, end: 20240124

REACTIONS (4)
  - Hypoxia [None]
  - Swollen tongue [None]
  - Skin discolouration [None]
  - Infusion related reaction [None]

NARRATIVE: CASE EVENT DATE: 20240124
